FAERS Safety Report 4980662-0 (Version None)
Quarter: 2006Q2

REPORT INFORMATION
  Report Type: 
  Country: None (occurrence: None)
  Receive Date: 20060424
  Receipt Date: 20060306
  Transmission Date: 20061013
  Serious: Yes (Death, Hospitalization)
  Sender: FDA-Public Use
  Company Number: JP-BRISTOL-MYERS SQUIBB COMPANY-13305222

PATIENT
  Age: 67 Year
  Sex: Male

DRUGS (12)
  1. TAXOL [Suspect]
     Indication: LUNG NEOPLASM MALIGNANT
     Route: 041
     Dates: start: 20051019, end: 20051019
  2. PARAPLATIN [Suspect]
     Indication: LUNG NEOPLASM MALIGNANT
     Route: 041
     Dates: start: 20051019, end: 20051019
  3. NEUTROGIN [Concomitant]
     Route: 058
     Dates: start: 20051027
  4. EXCELASE [Concomitant]
     Route: 048
     Dates: start: 20020101
  5. HALCION [Concomitant]
     Route: 048
     Dates: start: 20020101
  6. MAGNESIUM OXIDE [Concomitant]
     Route: 048
     Dates: start: 20050816
  7. PURSENNID [Concomitant]
     Route: 048
     Dates: start: 20050816
  8. OMEPRAL [Concomitant]
     Route: 048
     Dates: start: 20050830
  9. NOVAMIN [Concomitant]
     Route: 048
     Dates: start: 20050901
  10. PYRINAZIN [Concomitant]
     Route: 048
     Dates: start: 20050912
  11. DUROTEP [Concomitant]
     Route: 061
     Dates: start: 20050918
  12. FIRSTCIN [Concomitant]
     Route: 041
     Dates: start: 20051027, end: 20051103

REACTIONS (8)
  - INTERSTITIAL LUNG DISEASE [None]
  - MALIGNANT NEOPLASM PROGRESSION [None]
  - NEUTROPENIA [None]
  - NON-SMALL CELL LUNG CANCER [None]
  - PNEUMONIA [None]
  - PNEUMONIA ASPIRATION [None]
  - PNEUMOTHORAX [None]
  - SPINAL SHOCK [None]
